FAERS Safety Report 8947994 (Version 1)
Quarter: 2012Q4

REPORT INFORMATION
  Report Type: 
  Country: US (occurrence: US)
  Receive Date: 20121204
  Receipt Date: 20121204
  Transmission Date: 20130627
  Serious: No
  Sender: FDA-Public Use
  Company Number: US-ROXANE LABORATORIES, INC.-2012-RO-02536RO

PATIENT
  Sex: Female
  Weight: 61 kg

DRUGS (6)
  1. PREDNISONE [Suspect]
     Indication: LUNG DISORDER
     Dates: start: 20120531
  2. REVATIO [Suspect]
     Indication: EMPHYSEMA
     Route: 048
     Dates: start: 201201, end: 201210
  3. REVATIO [Suspect]
     Indication: PULMONARY HYPERTENSION
  4. COMBIVENT [Concomitant]
     Indication: EMPHYSEMA
  5. SPIRIVA [Concomitant]
     Indication: EMPHYSEMA
  6. ADVAIR DISKUS [Concomitant]
     Indication: EMPHYSEMA

REACTIONS (3)
  - Influenza [Unknown]
  - Joint swelling [Unknown]
  - Dyspepsia [Not Recovered/Not Resolved]
